FAERS Safety Report 24370019 (Version 1)
Quarter: 2024Q3

REPORT INFORMATION
  Report Type: Report from Study
  Country: US (occurrence: US)
  Receive Date: 20240927
  Receipt Date: 20240927
  Transmission Date: 20241017
  Serious: No
  Sender: ROCHE
  Company Number: US-ROCHE-3525391

PATIENT
  Sex: Female

DRUGS (1)
  1. RANIBIZUMAB [Suspect]
     Active Substance: RANIBIZUMAB
     Indication: Product use in unapproved indication
     Route: 065

REACTIONS (3)
  - Asthenopia [Unknown]
  - Colour blindness [Unknown]
  - Burning sensation [Unknown]
